FAERS Safety Report 5322976-0 (Version None)
Quarter: 2007Q2

REPORT INFORMATION
  Report Type: 
  Country: None (occurrence: None)
  Receive Date: 20070215
  Receipt Date: 20061206
  Transmission Date: 20071010
  Serious: Yes (Other)
  Sender: FDA-Public Use
  Company Number: 200613557BWH

PATIENT
  Age: 47 Year
  Sex: Male
  Weight: 131.5431 kg

DRUGS (6)
  1. NEXAVAR [Suspect]
     Indication: RENAL CELL CARCINOMA STAGE UNSPECIFIED
     Dosage: SEE IMAGE
     Route: 048
     Dates: start: 20060404, end: 20060609
  2. NEXAVAR [Suspect]
     Indication: RENAL CELL CARCINOMA STAGE UNSPECIFIED
     Dosage: SEE IMAGE
     Route: 048
     Dates: start: 20060101, end: 20060914
  3. LORTAB [Concomitant]
  4. VITAMIN B6 [Concomitant]
  5. PERCOCET [Concomitant]
  6. MINOCYCLINE HCL [Concomitant]

REACTIONS (11)
  - ABDOMINAL PAIN [None]
  - BLOOD AMYLASE INCREASED [None]
  - DIARRHOEA [None]
  - FLATULENCE [None]
  - FURUNCLE [None]
  - LIPASE INCREASED [None]
  - NAUSEA [None]
  - PALMAR-PLANTAR ERYTHRODYSAESTHESIA SYNDROME [None]
  - PARAESTHESIA [None]
  - RASH [None]
  - SKIN LESION [None]
